FAERS Safety Report 8924255 (Version 1)
Quarter: 2012Q4

REPORT INFORMATION
  Report Type: Spontaneous
  Country: GB (occurrence: None)
  Receive Date: 20121116
  Receipt Date: 20121116
  Transmission Date: 20130627
  Serious: Yes (Congenital Anomaly, Other)
  Sender: FDA-Public Use
  Company Number: GER/GER/12/0026617

PATIENT
  Sex: Female
  Weight: 2.43 kg

DRUGS (1)
  1. CITALOPRAM (CITALOPRAM) [Suspect]
     Indication: DRUG USE FOR UNKNOWN INDICATION
     Dosage: 5 mg,  1  D,  Transplacental
     Route: 064
     Dates: start: 20100828, end: 20110502

REACTIONS (8)
  - Premature baby [None]
  - Talipes [None]
  - Maternal drugs affecting foetus [None]
  - Talipes [None]
  - Ventricular extrasystoles [None]
  - Atrial septal defect [None]
  - Hyperbilirubinaemia neonatal [None]
  - Temperature regulation disorder [None]
